FAERS Safety Report 10516932 (Version 2)
Quarter: 2015Q1

REPORT INFORMATION
  Report Type: Spontaneous
  Country: AT (occurrence: AT)
  Receive Date: 20141014
  Receipt Date: 20150109
  Transmission Date: 20150720
  Serious: Yes (Other)
  Sender: FDA-Public Use
  Company Number: AT-AMGEN-AUTSP2014077667

PATIENT
  Age: 69 Year
  Sex: Male
  Weight: 76 kg

DRUGS (3)
  1. CORTISON [Concomitant]
     Active Substance: CORTISONE ACETATE
     Indication: BRAIN NEOPLASM MALIGNANT
     Dosage: UNK
     Dates: start: 201405
  2. XGEVA [Suspect]
     Active Substance: DENOSUMAB
     Indication: METASTASES TO BONE
     Dosage: 120 MG, Q2MO
     Route: 058
     Dates: start: 201305
  3. VOTRIENT [Concomitant]
     Active Substance: PAZOPANIB HYDROCHLORIDE
     Indication: METASTATIC RENAL CELL CARCINOMA
     Dosage: 800 MG, UNK
     Dates: start: 201307

REACTIONS (1)
  - Osteonecrosis of jaw [Not Recovered/Not Resolved]
